FAERS Safety Report 9016429 (Version 2)
Quarter: 2013Q1

REPORT INFORMATION
  Report Type: Spontaneous
  Country: FR (occurrence: FR)
  Receive Date: 20130116
  Receipt Date: 20130207
  Transmission Date: 20140127
  Serious: Yes (Life-Threatening, Hospitalization)
  Sender: FDA-Public Use
  Company Number: FR-GLAXOSMITHKLINE-B0856498A

PATIENT
  Age: 77 Year
  Sex: Female

DRUGS (19)
  1. ARIXTRA [Suspect]
     Indication: THROMBOPHLEBITIS
     Dosage: 7.5MG PER DAY
     Route: 058
     Dates: start: 20121109, end: 20121218
  2. PLAVIX [Suspect]
     Dosage: 75MG PER DAY
     Route: 048
     Dates: end: 20121218
  3. METHOTREXATE [Concomitant]
     Dosage: 15MG SEE DOSAGE TEXT
  4. CORTANCYL [Concomitant]
     Dosage: 9MG PER DAY
  5. FOLIC ACID [Concomitant]
     Dosage: 3TAB WEEKLY
     Route: 048
  6. ORACILLINE [Concomitant]
     Dosage: 1000000IU TWICE PER DAY
  7. MORPHINE [Concomitant]
     Dosage: 5MG SIX TIMES PER DAY
  8. DUROGESIC [Concomitant]
     Dosage: 50MCG EVERY 3 DAYS
  9. BRICANYL [Concomitant]
     Dosage: 5MG THREE TIMES PER DAY
  10. PROZAC [Concomitant]
     Dosage: 1TAB PER DAY
     Route: 048
  11. TAHOR [Concomitant]
     Dosage: 1TAB PER DAY
     Route: 048
  12. AMLOR [Concomitant]
     Dosage: 5MG PER DAY
  13. ATACAND [Concomitant]
     Dosage: 1TAB PER DAY
     Route: 048
  14. LASILIX [Concomitant]
     Dosage: 40MG TWICE PER DAY
  15. DIFFU K [Concomitant]
  16. DOMPERIDONE [Concomitant]
  17. FORLAX [Concomitant]
  18. INEXIUM [Concomitant]
     Dosage: 20MG PER DAY
  19. FLUCONAZOLE [Concomitant]
     Dosage: 1APP PER DAY
     Route: 050

REACTIONS (11)
  - Shock haemorrhagic [Recovering/Resolving]
  - Haematoma [Recovered/Resolved with Sequelae]
  - Haemorrhage [Recovering/Resolving]
  - Anaemia [Recovering/Resolving]
  - Arthralgia [Unknown]
  - Hypotension [Unknown]
  - Tachycardia [Unknown]
  - Rales [Unknown]
  - Blister [Unknown]
  - Haemodynamic instability [Unknown]
  - Incorrect drug administration duration [Unknown]
